FAERS Safety Report 8896361 (Version 1)
Quarter: 2012Q4

REPORT INFORMATION
  Report Type: Spontaneous
  Country: US (occurrence: None)
  Receive Date: 20121031
  Receipt Date: 20121031
  Transmission Date: 20130627
  Serious: Yes (Death, Hospitalization)
  Sender: FDA-Public Use
  Company Number: TIR-01318

PATIENT
  Age: 24 Year
  Sex: Female

DRUGS (8)
  1. LEVOTHYROXINE [Suspect]
     Indication: HYPOTHYROIDISM
     Dosage: 100mcg daily  2 weeks
  2. PREDNISONE [Concomitant]
  3. FUROSEMIDE [Concomitant]
  4. METROPROLOL SUCCINATE [Concomitant]
  5. LISINOPRIL [Concomitant]
  6. MILRINONE [Concomitant]
  7. GLUCOCORTICOSTEROID THEAPY [Concomitant]
  8. IMMUNOSUPPRESANT TREATMENT [Concomitant]

REACTIONS (6)
  - Septic shock [None]
  - Hepatic failure [None]
  - White blood cell count increased [None]
  - Lactic acidosis [None]
  - Hypotension [None]
  - Pyrexia [None]
